FAERS Safety Report 7769899-5 (Version None)
Quarter: 2011Q3

REPORT INFORMATION
  Report Type: 
  Country: None (occurrence: None)
  Receive Date: 20110922
  Receipt Date: 20110916
  Transmission Date: 20111222
  Serious: Yes (Hospitalization)
  Sender: FDA-Public Use
  Company Number: US-GLAXOSMITHKLINE-A0808181A

PATIENT
  Age: 60 Year
  Sex: Female

DRUGS (1)
  1. AVANDIA [Suspect]
     Indication: TYPE 2 DIABETES MELLITUS
     Dosage: 2MG TWICE PER DAY
     Dates: start: 20020901, end: 20060601

REACTIONS (5)
  - ACTIVITIES OF DAILY LIVING IMPAIRED [None]
  - HYPERLIPIDAEMIA [None]
  - CONDITION AGGRAVATED [None]
  - CEREBROVASCULAR ACCIDENT [None]
  - HEMIPLEGIA [None]
